FAERS Safety Report 8957285 (Version 1)
Quarter: 2012Q4

REPORT INFORMATION
  Report Type: 
  Country: US (occurrence: US)
  Receive Date: 20121211
  Receipt Date: 20121211
  Transmission Date: 20130627
  Serious: Yes (Other)
  Sender: FDA-Public Use
  Company Number: US-ROCHE-1167253

PATIENT

DRUGS (1)
  1. GANCICLOVIR [Suspect]
     Indication: CYTOMEGALOVIRUS INFECTION
     Route: 065

REACTIONS (1)
  - Drug resistance [Recovered/Resolved]
